FAERS Safety Report 11584553 (Version 1)
Quarter: 2015Q4

REPORT INFORMATION
  Report Type: Spontaneous
  Country: US (occurrence: US)
  Receive Date: 20151001
  Receipt Date: 20151001
  Transmission Date: 20160304
  Serious: No
  Sender: FDA-Public Use
  Company Number: CHPA2015US011546

PATIENT
  Age: 80 Year
  Sex: Male

DRUGS (1)
  1. VOLTAREN [Suspect]
     Active Substance: DICLOFENAC SODIUM
     Indication: ARTHRITIS
     Dosage: 2 G PER KNEE, BID
     Route: 061
     Dates: start: 201508, end: 20150927

REACTIONS (8)
  - Dermatitis contact [Recovering/Resolving]
  - Pruritus generalised [Recovering/Resolving]
  - Rash [Recovered/Resolved]
  - Underdose [Unknown]
  - Erythema [Recovering/Resolving]
  - Inappropriate schedule of drug administration [Unknown]
  - Pigmentation disorder [Recovering/Resolving]
  - Eczema [Recovered/Resolved]

NARRATIVE: CASE EVENT DATE: 201508
